FAERS Safety Report 17556640 (Version 1)
Quarter: 2020Q1

REPORT INFORMATION
  Report Type: Spontaneous
  Country: DE (occurrence: DE)
  Receive Date: 20200318
  Receipt Date: 20200318
  Transmission Date: 20200409
  Serious: Yes (Hospitalization)
  Sender: FDA-Public Use
  Company Number: DE-TEVA-2020-DE-1202811

PATIENT
  Age: 87 Year
  Sex: Male

DRUGS (8)
  1. METFORMIN [Concomitant]
     Active Substance: METFORMIN HYDROCHLORIDE
     Dosage: 1000 MG, 1-1-0.5-0
  2. ALLOPURINOL. [Concomitant]
     Active Substance: ALLOPURINOL
     Dosage: 1-0-0-0
  3. OMEPRAZOL [Concomitant]
     Active Substance: OMEPRAZOLE
     Dosage: 20 MILLIGRAM DAILY; 20 MG, 0-0-1-0
  4. HYDROCHLOROTHIAZID/VALSARTAN [Suspect]
     Active Substance: HYDROCHLOROTHIAZIDE\VALSARTAN
     Dosage: 1-0-0-0
     Route: 065
  5. TORASEMID [Suspect]
     Active Substance: TORSEMIDE
     Dosage: 10 MILLIGRAM DAILY; 10 MG, 0-1-0-0
  6. ACETYLSALICYLSAURE [Concomitant]
     Active Substance: ASPIRIN
     Dosage: 0-1-0-0
  7. METOPROLOL. [Suspect]
     Active Substance: METOPROLOL
     Dosage: 1-0-0-1.5
     Route: 065
  8. NITRENDIPIN [Suspect]
     Active Substance: NITRENDIPINE
     Dosage: 40 MILLIGRAM DAILY; 20 MG, 0-1-0-1

REACTIONS (2)
  - Dizziness [Recovered/Resolved]
  - Dehydration [Recovered/Resolved]
